FAERS Safety Report 6715342-4 (Version None)
Quarter: 2010Q2

REPORT INFORMATION
  Report Type: 
  Country: None (occurrence: None)
  Receive Date: 20100507
  Receipt Date: 20100507
  Transmission Date: 20101027
  Serious: Yes (Hospitalization, Other)
  Sender: FDA-Public Use
  Company Number: None

PATIENT
  Age: 9 Month
  Sex: Male
  Weight: 9.5255 kg

DRUGS (2)
  1. CONCENTRATED MOTRIN INFANTS DROPS [Suspect]
     Indication: PYREXIA
     Dosage: 1.875 ML 6-8 HRS AS NEEDED PO
     Route: 048
     Dates: start: 20090515, end: 20100404
  2. CONCENTRATED TYLENOL INFANT DROPS [Suspect]
     Indication: PYREXIA
     Dosage: 1.6 ML 4 HRS-AS NEEDED PO
     Route: 048
     Dates: start: 20090515, end: 20100404

REACTIONS (4)
  - DRUG INEFFECTIVE [None]
  - FEBRILE CONVULSION [None]
  - PNEUMONIA [None]
  - PRODUCT QUALITY ISSUE [None]
